FAERS Safety Report 9591661 (Version 1)
Quarter: 2013Q4

REPORT INFORMATION
  Report Type: Spontaneous
  Country: US (occurrence: US)
  Receive Date: 20131003
  Receipt Date: 20131003
  Transmission Date: 20140711
  Serious: No
  Sender: FDA-Public Use
  Company Number: US-AMGEN-USASP2012081777

PATIENT
  Age: 49 Year
  Sex: Female
  Weight: 86.17 kg

DRUGS (6)
  1. ENBREL [Suspect]
     Indication: RHEUMATOID ARTHRITIS
     Dosage: 50 MG, QWK
     Route: 058
  2. PREDNISONE [Concomitant]
     Dosage: 5 MG, UNK
  3. NAPROXEN [Concomitant]
     Dosage: 500 MG, UNK
  4. FOLIC ACID [Concomitant]
     Dosage: 1 MG, UNK
  5. DILTIAZEM [Concomitant]
     Dosage: 90 MG, ER
  6. METHOTREXATE [Concomitant]
     Dosage: 1 GM

REACTIONS (2)
  - Back pain [Unknown]
  - Injection site pain [Unknown]
